FAERS Safety Report 5567933-4 (Version None)
Quarter: 2007Q4

REPORT INFORMATION
  Report Type: 
  Country: None (occurrence: None)
  Receive Date: 20071218
  Receipt Date: 20071213
  Transmission Date: 20080405
  Serious: Yes (Disabling)
  Sender: FDA-Public Use
  Company Number: SP01435

PATIENT
  Age: 34 Year
  Sex: Male
  Weight: 108.8633 kg

DRUGS (1)
  1. COLAZAL [Suspect]
     Indication: COLITIS ULCERATIVE
     Dosage: 6750 MG (2250 MG, 3 IN 1 D), ORAL
     Route: 048
     Dates: start: 20050801, end: 20060801

REACTIONS (1)
  - SPERM COUNT DECREASED [None]
